FAERS Safety Report 8044573-9 (Version None)
Quarter: 2012Q1

REPORT INFORMATION
  Report Type: 
  Country: None (occurrence: None)
  Receive Date: 20120113
  Receipt Date: 20120113
  Transmission Date: 20120608
  Serious: Yes (Death)
  Sender: FDA-Public Use
  Company Number: None

PATIENT
  Age: 65 Year
  Sex: Female
  Weight: 42 kg

DRUGS (1)
  1. FLOSEAL [Suspect]

REACTIONS (6)
  - RIGHT VENTRICULAR FAILURE [None]
  - PROCEDURAL HAEMORRHAGE [None]
  - GENERAL PHYSICAL HEALTH DETERIORATION [None]
  - HAEMODYNAMIC INSTABILITY [None]
  - PULMONARY MICROEMBOLI [None]
  - PULMONARY HYPERTENSION [None]
